FAERS Safety Report 7220330-8 (Version None)
Quarter: 2011Q1

REPORT INFORMATION
  Report Type: 
  Country: None (occurrence: None)
  Receive Date: 20110111
  Receipt Date: 20110106
  Transmission Date: 20110831
  Serious: Yes (Death, Life-Threatening)
  Sender: FDA-Public Use
  Company Number: DE-PFIZER INC-2010030766

PATIENT
  Age: 42 Year
  Sex: Male

DRUGS (29)
  1. ZOVIRAX [Suspect]
     Indication: ENCEPHALITIS HERPES
     Dosage: 750 MG, 3X/DAY
     Route: 042
     Dates: start: 20080221, end: 20080225
  2. HALDOL [Suspect]
     Dosage: 5 MG, 2X/DAY
     Dates: start: 20080224, end: 20080301
  3. ADVANTAN [Suspect]
     Indication: ACNE
     Dosage: UNK
     Route: 061
     Dates: start: 20080225, end: 20080227
  4. SULFADIAZINE [Suspect]
     Indication: TOXOPLASMOSIS
     Dosage: 1.5 G, 3X/DAY
     Route: 042
     Dates: start: 20080225, end: 20080306
  5. LAVASEPT [Suspect]
     Indication: EAR INFECTION
     Dosage: UNK
     Route: 001
     Dates: start: 20080227, end: 20080306
  6. TAVOR [Suspect]
     Indication: HALLUCINATION
     Dosage: 0.5 DF, 3X/DAY
     Route: 042
     Dates: start: 20080221
  7. DORMICUM FOR INJECTION [Suspect]
     Indication: DELIRIUM
     Dosage: 5 MG, UNK
     Route: 042
     Dates: start: 20080220, end: 20080220
  8. FORTUM [Suspect]
     Indication: SEPSIS
     Dosage: 2 G, 3X/DAY
     Route: 042
     Dates: start: 20080221, end: 20080226
  9. NEXIUM [Suspect]
     Indication: PROPHYLAXIS AGAINST GASTROINTESTINAL ULCER
     Dosage: 40 MG, 1X/DAY
     Route: 042
     Dates: start: 20080222
  10. AMINOVEN [Suspect]
     Indication: SUPPLEMENTATION THERAPY
     Dosage: UNK
     Route: 042
     Dates: start: 20080221, end: 20080306
  11. CILOXAN [Suspect]
     Indication: EAR INFECTION
     Dosage: UNK
     Route: 001
     Dates: start: 20080227, end: 20080306
  12. KONAKION [Suspect]
     Indication: SUPPLEMENTATION THERAPY
     Dosage: 1 DF, UNK
     Route: 042
     Dates: start: 20080228, end: 20080305
  13. LAVASEPT [Suspect]
     Indication: ACNE
     Dosage: UNK
     Route: 061
     Dates: start: 20080223, end: 20080225
  14. BETABION [Suspect]
     Indication: SUPPLEMENTATION THERAPY
     Dosage: 100 MG, UNK
     Route: 048
     Dates: start: 20080228, end: 20080306
  15. TAVANIC [Suspect]
     Indication: SEPSIS
     Dosage: 500 MG, 2X/DAY
     Route: 042
     Dates: start: 20080301, end: 20080306
  16. FRAGMIN [Suspect]
     Indication: THROMBOSIS PROPHYLAXIS
     Dosage: 0.2 ML, 1X/DAY
     Route: 058
     Dates: start: 20080221, end: 20080306
  17. ASPISOL [Suspect]
     Indication: THROMBOSIS PROPHYLAXIS
     Dosage: 250 MG, UNK
     Route: 042
     Dates: start: 20080221, end: 20080225
  18. VITAMIN B1 [Suspect]
     Indication: VITAMIN SUPPLEMENTATION
     Dosage: 100 MG, 1X/DAY
     Route: 042
     Dates: start: 20080221, end: 20080228
  19. TAZOBAC [Suspect]
     Indication: SEPSIS
     Dosage: 4.5 MG, 3X/DAY
     Route: 042
     Dates: start: 20080226, end: 20080306
  20. HALDOL [Suspect]
     Dosage: 5 MG, 3X/DAY
     Route: 048
     Dates: start: 20080302, end: 20080306
  21. NEXIUM [Suspect]
     Dosage: 20 MG, 1X/DAY
     Route: 042
  22. TAVOR [Suspect]
     Dosage: 0.5 MG, 3X/DAY
  23. HALDOL [Suspect]
     Indication: HALLUCINATION
     Dosage: 5 MG, 3X/DAY
     Route: 042
     Dates: start: 20080221, end: 20080222
  24. LEDERFOLAT [Suspect]
     Indication: SUPPLEMENTATION THERAPY
     Dosage: 15 MG, 1X/DAY
     Route: 048
     Dates: start: 20080225, end: 20080306
  25. DARAPRIM [Suspect]
     Indication: TOXOPLASMOSIS
     Dosage: 25 MG, 2X/DAY
     Route: 048
     Dates: start: 20080225
  26. PARACETAMOL [Suspect]
     Indication: PYREXIA
     Dosage: UNK
     Route: 048
     Dates: start: 20080221, end: 20080306
  27. INSUMAN RAPID [Suspect]
     Indication: HYPERGLYCAEMIA
     Dosage: UNK
     Route: 042
     Dates: start: 20080221, end: 20080308
  28. VANCOMYCIN [Suspect]
     Indication: EAR INFECTION
     Dosage: 1 G, 2X/DAY
     Route: 042
     Dates: start: 20080221, end: 20080301
  29. NIZORAL [Suspect]
     Indication: ACNE
     Dosage: UNK
     Route: 061
     Dates: start: 20080225, end: 20080306

REACTIONS (2)
  - TOXIC EPIDERMAL NECROLYSIS [None]
  - STEVENS-JOHNSON SYNDROME [None]
